FAERS Safety Report 5720821-2 (Version None)
Quarter: 2008Q2

REPORT INFORMATION
  Report Type: 
  Country: None (occurrence: None)
  Receive Date: 20080429
  Receipt Date: 20080424
  Transmission Date: 20081010
  Serious: Yes (Death, Other)
  Sender: FDA-Public Use
  Company Number: PHHY2008JP04968

PATIENT
  Age: 67 Year
  Sex: Male
  Weight: 70 kg

DRUGS (7)
  1. NORVASC [Concomitant]
     Indication: HYPERTENSION
     Dosage: 5 MG
     Route: 048
     Dates: end: 20080330
  2. BLOPRESS [Concomitant]
     Indication: HYPERTENSION
     Dosage: 8 MG
     Route: 048
  3. LANIRAPID [Concomitant]
     Dosage: 0.05 MG
     Route: 048
     Dates: start: 19980901, end: 20080330
  4. ASPIRIN [Concomitant]
     Dosage: 100 MG
     Route: 048
     Dates: start: 19980901, end: 20080330
  5. WYTENS [Concomitant]
     Dosage: 4 MG
     Route: 048
     Dates: start: 19980901, end: 20080330
  6. FRANDOL [Concomitant]
     Dosage: 40 MG
     Route: 062
     Dates: start: 20071105, end: 20080330
  7. DIOVAN [Suspect]
     Indication: HYPERTENSION
     Dosage: 80 MG, QD
     Route: 048
     Dates: start: 20070903, end: 20080330

REACTIONS (14)
  - ACUTE MYOCARDIAL INFARCTION [None]
  - ALANINE AMINOTRANSFERASE INCREASED [None]
  - ASPARTATE AMINOTRANSFERASE INCREASED [None]
  - DIZZINESS [None]
  - GAMMA-GLUTAMYLTRANSFERASE INCREASED [None]
  - GLYCOSYLATED HAEMOGLOBIN INCREASED [None]
  - HEPATIC CIRRHOSIS [None]
  - HEPATIC ENZYME INCREASED [None]
  - HYPERGLYCAEMIA [None]
  - NAUSEA [None]
  - PLATELET COUNT DECREASED [None]
  - PROTEIN URINE PRESENT [None]
  - RESPIRATORY ARREST [None]
  - TREATMENT NONCOMPLIANCE [None]
